FAERS Safety Report 9155673 (Version 1)
Quarter: 2013Q1

REPORT INFORMATION
  Report Type: Spontaneous
  Country: US (occurrence: US)
  Receive Date: 20130311
  Receipt Date: 20130311
  Transmission Date: 20140127
  Serious: No
  Sender: FDA-Public Use
  Company Number: US-009507513-1303USA004935

PATIENT
  Sex: Male

DRUGS (1)
  1. CHLOR-TRIMETON 12 HOUR [Suspect]
     Indication: SINUS CONGESTION
     Dosage: UNK, QPM
     Route: 048

REACTIONS (3)
  - Dry mouth [Unknown]
  - Drug ineffective for unapproved indication [Unknown]
  - Off label use [Unknown]
